FAERS Safety Report 6915516-3 (Version None)
Quarter: 2010Q3

REPORT INFORMATION
  Report Type: 
  Country: None (occurrence: None)
  Receive Date: 20100804
  Receipt Date: 20100720
  Transmission Date: 20110219
  Serious: Yes (Death)
  Sender: FDA-Public Use
  Company Number: AE 2010-174

PATIENT
  Age: 62 Year
  Sex: Male

DRUGS (1)
  1. FAZACLO ODT [Suspect]
     Dosage: 325 MG DAILY PO
     Route: 048
     Dates: start: 20070519

REACTIONS (1)
  - DEATH [None]
